FAERS Safety Report 21830919 (Version 1)
Quarter: 2023Q1

REPORT INFORMATION
  Report Type: Spontaneous
  Country: US (occurrence: US)
  Receive Date: 20230106
  Receipt Date: 20230106
  Transmission Date: 20230417
  Serious: No
  Sender: FDA-Public Use
  Company Number: US-PFIZER INC-202300004752

PATIENT
  Age: 50 Year
  Sex: Male
  Weight: 107.05 kg

DRUGS (9)
  1. PAXLOVID [Interacting]
     Active Substance: NIRMATRELVIR\RITONAVIR
     Indication: COVID-19 treatment
     Dosage: UNK
     Dates: start: 20230103
  2. GABAPENTIN [Interacting]
     Active Substance: GABAPENTIN
     Dosage: 300 MG, 2X/DAY
  3. ACETAMINOPHEN\OXYCODONE HYDROCHLORIDE\OXYCODONE TEREPHTHALATE [Interacting]
     Active Substance: ACETAMINOPHEN\OXYCODONE HYDROCHLORIDE\OXYCODONE TEREPHTHALATE
     Dosage: 325 MG, 4X/DAY
  4. CEFIXIME [Interacting]
     Active Substance: CEFIXIME
     Dosage: 10 MG, 3X/DAY
  5. LISINOPRIL [Interacting]
     Active Substance: LISINOPRIL
     Dosage: 5 MG, 1X/DAY
  6. ADDERALL [Interacting]
     Active Substance: AMPHETAMINE ASPARTATE\AMPHETAMINE SULFATE\DEXTROAMPHETAMINE SACCHARATE\DEXTROAMPHETAMINE SULFATE
     Dosage: 40 MG, DAILY (40MG PER DAY)
  7. CITALOPRAM [Interacting]
     Active Substance: CITALOPRAM HYDROBROMIDE
     Dosage: 20 MG, DAILY
  8. TRAMADOL [Interacting]
     Active Substance: TRAMADOL
     Dosage: 200 MG, DAILY
  9. KLONOPIN [Interacting]
     Active Substance: CLONAZEPAM
     Dosage: 0.5 MG, DAILY (AT NIGHT)

REACTIONS (5)
  - Drug interaction [Unknown]
  - Fatigue [Unknown]
  - Somnolence [Unknown]
  - Memory impairment [Unknown]
  - Disturbance in attention [Unknown]

NARRATIVE: CASE EVENT DATE: 20230101
